FAERS Safety Report 8737903 (Version 2)
Quarter: 2013Q2

REPORT INFORMATION
  Report Type: Report from Study
  Country: JP (occurrence: JP)
  Receive Date: 20120823
  Receipt Date: 20130501
  Transmission Date: 20140414
  Serious: Yes (Other)
  Sender: FDA-Public Use
  Company Number: JP-MERCK-2012SP020549

PATIENT
  Age: 65 Year
  Sex: Female
  Weight: 63 kg

DRUGS (25)
  1. PEGINTRON [Suspect]
     Indication: CHRONIC HEPATITIS C
     Dosage: 1.0 MICROGRAM PER KILOGRAM, QW
     Route: 058
     Dates: start: 20120207, end: 20120703
  2. RIBAVIRIN [Suspect]
     Indication: CHRONIC HEPATITIS C
     Dosage: 600 MG, QD
     Route: 048
     Dates: start: 20120207, end: 20120228
  3. RIBAVIRIN [Suspect]
     Dosage: 400 MG, QD
     Route: 048
     Dates: start: 20120229, end: 20120313
  4. RIBAVIRIN [Suspect]
     Dosage: 200 MG, QD
     Route: 048
     Dates: start: 20120314, end: 20120327
  5. RIBAVIRIN [Suspect]
     Dosage: 400 MG, QD
     Route: 048
     Dates: start: 20120328, end: 20120403
  6. RIBAVIRIN [Suspect]
     Dosage: 600 MG, QD
     Route: 048
     Dates: start: 20120404, end: 20120508
  7. RIBAVIRIN [Suspect]
     Dosage: 200 MG, QD
     Route: 048
     Dates: start: 20120509, end: 20120522
  8. RIBAVIRIN [Suspect]
     Dosage: 400 MG, QD
     Route: 048
     Dates: start: 20120523, end: 20120619
  9. RIBAVIRIN [Suspect]
     Dosage: 600 MG, QD
     Route: 048
     Dates: start: 20120620, end: 20120625
  10. RIBAVIRIN [Suspect]
     Dosage: 400 MG, QD
     Route: 048
     Dates: start: 20120626, end: 20120703
  11. TELAVIC [Suspect]
     Indication: CHRONIC HEPATITIS C
     Dosage: 1500 MG, QD
     Route: 048
     Dates: start: 20120207, end: 20120501
  12. LIVALO [Concomitant]
     Indication: HYPERLIPIDAEMIA
     Dosage: 2 MG, QD, POR
     Route: 048
  13. FEROTYM [Concomitant]
     Indication: IRON DEFICIENCY ANAEMIA
     Dosage: 100 MG, QD, POR
     Route: 048
  14. EPADEL [Concomitant]
     Indication: HYPERLIPIDAEMIA
     Dosage: 1800 MG, QD, POR
     Route: 048
  15. ASPIRIN [Concomitant]
     Indication: MYOCARDIAL INFARCTION
     Dosage: 100 MG, QD, POR
     Route: 048
  16. AMLODIPINE BESYLATE [Concomitant]
     Indication: HYPERTENSION
     Dosage: 2.5 MG, QD, POR
     Route: 048
  17. ARTIST [Concomitant]
     Indication: CARDIAC FAILURE
     Dosage: 10 MG, QD, POR
     Route: 048
  18. ACARBOSE [Concomitant]
     Indication: DIABETES MELLITUS
     Dosage: 200 MG, QD, POR
     Route: 048
  19. ARTIST [Concomitant]
     Indication: HYPERTENSION
     Dosage: 5 MG, QD, POR
     Route: 048
  20. ARTIST [Concomitant]
     Indication: CARDIAC FAILURE
  21. ARTIST [Concomitant]
     Indication: HYPERTONIA
  22. JANUVIA TABLETS 50MG [Concomitant]
     Indication: DIABETES MELLITUS
     Dosage: 50 MG, QD, POR
     Route: 048
     Dates: start: 20120321
  23. PREDONINE [Concomitant]
     Indication: RASH
     Dosage: 15 MG, QD
     Route: 048
     Dates: start: 20120314, end: 20130403
  24. CLARITIN REDITABS [Concomitant]
     Dosage: POR
     Route: 048
  25. DOGMATYL [Concomitant]
     Dosage: POR
     Route: 048

REACTIONS (2)
  - Anaemia [Not Recovered/Not Resolved]
  - Rash [None]
